FAERS Safety Report 21743973 (Version 1)
Quarter: 2022Q4

REPORT INFORMATION
  Report Type: Report from Study
  Country: US (occurrence: US)
  Receive Date: 20221217
  Receipt Date: 20221217
  Transmission Date: 20230112
  Serious: No
  Sender: FDA-Public Use
  Company Number: US-ABBVIE-4201186

PATIENT
  Sex: Female

DRUGS (2)
  1. HUMIRA [Suspect]
     Active Substance: ADALIMUMAB
     Indication: Rheumatoid arthritis
     Dosage: CF ?FORM STRENGTH 40 MILLIGRAM
     Route: 058
  2. COVID-19 vaccine [Concomitant]
     Indication: COVID-19 immunisation
     Dosage: COVID VACCINE 1 IN ONCE
     Route: 030

REACTIONS (2)
  - Hearing aid user [Unknown]
  - Unevaluable event [Recovered/Resolved with Sequelae]

NARRATIVE: CASE EVENT DATE: 20220101
